FAERS Safety Report 17952930 (Version 1)
Quarter: 2020Q2

REPORT INFORMATION
  Report Type: Spontaneous
  Country: IN (occurrence: IN)
  Receive Date: 20200627
  Receipt Date: 20200627
  Transmission Date: 20200714
  Serious: Yes (Death, Life-Threatening, Hospitalization, Other)
  Sender: FDA-Public Use
  Company Number: IN-ACCORD-187064

PATIENT
  Age: 15 Year
  Sex: Female

DRUGS (8)
  1. CISPLATIN. [Suspect]
     Active Substance: CISPLATIN
     Indication: INTRACRANIAL GERM CELL TUMOUR
     Dates: start: 2016
  2. ETOPOSIDE. [Suspect]
     Active Substance: ETOPOSIDE
     Indication: INTRACRANIAL GERM CELL TUMOUR
     Dates: start: 2016
  3. BLEOMYCIN [Suspect]
     Active Substance: BLEOMYCIN SULFATE
     Indication: INTRACRANIAL GERM CELL TUMOUR
     Dates: start: 2016
  4. LEVOTHYROXINE. [Concomitant]
     Active Substance: LEVOTHYROXINE
     Route: 048
     Dates: start: 2013
  5. PREDNISOLONE. [Concomitant]
     Active Substance: PREDNISOLONE
     Indication: HYPOPHYSITIS
     Dosage: TAPERED
     Route: 048
     Dates: start: 2013
  6. DESMOPRESSIN [Concomitant]
     Active Substance: DESMOPRESSIN
     Indication: DIABETES INSIPIDUS
     Route: 045
  7. PREDNISOLONE. [Concomitant]
     Active Substance: PREDNISOLONE
     Indication: HYPOPHYSITIS
     Route: 048
     Dates: start: 2013, end: 2013
  8. DESMOPRESSIN [Concomitant]
     Active Substance: DESMOPRESSIN
     Indication: DIABETES INSIPIDUS
     Route: 045
     Dates: start: 2013

REACTIONS (2)
  - Escherichia sepsis [Fatal]
  - Febrile neutropenia [Fatal]
